FAERS Safety Report 5948085-5 (Version None)
Quarter: 2008Q4

REPORT INFORMATION
  Report Type: 
  Country: None (occurrence: None)
  Receive Date: 20081111
  Receipt Date: 20081027
  Transmission Date: 20090506
  Serious: Yes (Hospitalization, Other)
  Sender: FDA-Public Use
  Company Number: US-BIOGENIDEC-2008BI015921

PATIENT
  Age: 55 Year
  Sex: Female
  Weight: 95 kg

DRUGS (10)
  1. TYSABRI [Suspect]
     Indication: MULTIPLE SCLEROSIS
     Route: 042
     Dates: start: 20070717, end: 20080505
  2. PROVIGIL [Concomitant]
     Indication: FATIGUE
     Route: 048
  3. NEURONTIN [Concomitant]
     Indication: NEURALGIA
     Route: 048
  4. DIAZEPAM [Concomitant]
     Indication: DIZZINESS
     Route: 048
  5. POTASSIUM CHLORIDE [Concomitant]
     Route: 048
  6. METFORMIN HYDROCHLORIDE [Concomitant]
     Indication: INSULIN RESISTANCE
     Route: 048
  7. PRILOSEC [Concomitant]
     Indication: GASTROOESOPHAGEAL REFLUX DISEASE
     Route: 048
  8. ELAVIL [Concomitant]
     Indication: MUSCLE SPASMS
     Route: 048
  9. IMODIUM [Concomitant]
     Indication: DIARRHOEA
     Route: 048
  10. VIOXX [Concomitant]
     Indication: MUSCULOSKELETAL PAIN
     Route: 048

REACTIONS (4)
  - FATIGUE [None]
  - MUCOEPIDERMOID CARCINOMA [None]
  - MUSCLE SPASMS [None]
  - MUSCULAR WEAKNESS [None]
